FAERS Safety Report 12132013 (Version 2)
Quarter: 2016Q1

REPORT INFORMATION
  Report Type: Spontaneous
  Country: DE (occurrence: DE)
  Receive Date: 20160301
  Receipt Date: 20160331
  Transmission Date: 20160526
  Serious: Yes (Other)
  Sender: FDA-Public Use
  Company Number: DE-AMGEN-DEUSP2016023332

PATIENT
  Sex: Female
  Weight: 90 kg

DRUGS (6)
  1. VIGANTOLETTEN [Concomitant]
     Active Substance: CHOLECALCIFEROL
     Dosage: 1000 UNK, UNK
  2. MICARDIS [Concomitant]
     Active Substance: TELMISARTAN
  3. PROLIA [Suspect]
     Active Substance: DENOSUMAB
     Indication: OSTEOPOROSIS
     Dosage: UNK, Q6MO
     Route: 058
     Dates: start: 20110531, end: 20151217
  4. NEBIVOLOL. [Concomitant]
     Active Substance: NEBIVOLOL
     Indication: HYPERTENSION
     Dosage: 5 MG, UNK
  5. ASS PROTECTID [Concomitant]
  6. TRAMADOL. [Concomitant]
     Active Substance: TRAMADOL
     Indication: PAIN
     Dosage: 50 MG, UNK

REACTIONS (14)
  - Cardiac failure [Unknown]
  - Renal disorder [Unknown]
  - Periodontitis [Recovered/Resolved]
  - Skin disorder [Unknown]
  - Paraesthesia oral [Unknown]
  - Constipation [Unknown]
  - Pain in extremity [Not Recovered/Not Resolved]
  - Multiple fractures [Unknown]
  - Paraesthesia [Not Recovered/Not Resolved]
  - Hypoaesthesia oral [Unknown]
  - Accident [Unknown]
  - Diverticulitis [Recovered/Resolved]
  - Skin mass [Unknown]
  - Fall [Unknown]

NARRATIVE: CASE EVENT DATE: 2012
